FAERS Safety Report 13640755 (Version 2)
Quarter: 2018Q1

REPORT INFORMATION
  Report Type: Spontaneous
  Country: CA (occurrence: CA)
  Receive Date: 20170612
  Receipt Date: 20180103
  Transmission Date: 20180508
  Serious: Yes (Hospitalization, Other)
  Sender: FDA-Public Use
  Company Number: CA-CONCORDIA PHARMACEUTICALS INC.-GSH201706-003388

PATIENT
  Age: 50 Year
  Sex: Female

DRUGS (15)
  1. HYDROXYCHLOROQUINE [Suspect]
     Active Substance: HYDROXYCHLOROQUINE
     Indication: RHEUMATOID ARTHRITIS
     Route: 048
  2. XELJANZ [Concomitant]
     Active Substance: TOFACITINIB CITRATE
     Indication: RHEUMATOID ARTHRITIS
  3. PREDNISONE. [Suspect]
     Active Substance: PREDNISONE
     Indication: RHEUMATOID ARTHRITIS
     Route: 065
  4. FOLIC ACID. [Concomitant]
     Active Substance: FOLIC ACID
  5. ACTEMRA [Suspect]
     Active Substance: TOCILIZUMAB
     Indication: RHEUMATOID ARTHRITIS
     Route: 065
     Dates: start: 2012
  6. METHOTREXATE SODIUM. [Suspect]
     Active Substance: METHOTREXATE SODIUM
     Indication: RHEUMATOID ARTHRITIS
     Dates: start: 2012
  7. HYDROXYCHLOROQUINE [Suspect]
     Active Substance: HYDROXYCHLOROQUINE
     Indication: PRODUCT USED FOR UNKNOWN INDICATION
     Route: 048
  8. LORAZEPAM. [Concomitant]
     Active Substance: LORAZEPAM
  9. VITAMIN D3 [Concomitant]
     Active Substance: CHOLECALCIFEROL
  10. LOTEMAX [Concomitant]
     Active Substance: LOTEPREDNOL ETABONATE
  11. DEXAMETHASONE TOBRAMYCIN [Concomitant]
  12. CELEBREX [Suspect]
     Active Substance: CELECOXIB
     Indication: RHEUMATOID ARTHRITIS
     Route: 048
     Dates: start: 2012
  13. SULFASALAZINE. [Suspect]
     Active Substance: SULFASALAZINE
     Indication: RHEUMATOID ARTHRITIS
     Route: 048
     Dates: start: 2012
  14. LEFLUNOMIDE. [Suspect]
     Active Substance: LEFLUNOMIDE
     Indication: PRODUCT USED FOR UNKNOWN INDICATION
     Route: 065
     Dates: start: 201401, end: 201406
  15. OXYCODONE HYDROCHLORIDE. [Concomitant]
     Active Substance: OXYCODONE HYDROCHLORIDE

REACTIONS (12)
  - Dyspnoea [Not Recovered/Not Resolved]
  - Rheumatoid arthritis [Unknown]
  - Drug intolerance [Unknown]
  - Diverticulitis [Not Recovered/Not Resolved]
  - Nausea [Not Recovered/Not Resolved]
  - Arthropathy [Unknown]
  - Drug hypersensitivity [Not Recovered/Not Resolved]
  - Limb injury [Unknown]
  - Diverticulum [Unknown]
  - Stomal hernia [Not Recovered/Not Resolved]
  - Condition aggravated [Not Recovered/Not Resolved]
  - Joint destruction [Not Recovered/Not Resolved]

NARRATIVE: CASE EVENT DATE: 2012
